FAERS Safety Report 6614524-X (Version None)
Quarter: 2010Q1

REPORT INFORMATION
  Report Type: 
  Country: None (occurrence: None)
  Receive Date: 20100304
  Receipt Date: 20100304
  Transmission Date: 20100710
  Serious: Yes (Hospitalization)
  Sender: FDA-Public Use
  Company Number: None

PATIENT
  Sex: Female
  Weight: 44.5 kg

DRUGS (7)
  1. CYTARABINE [Suspect]
     Dosage: 70 MG
  2. DAUNORUBICIN HCL [Suspect]
     Dosage: 51 MG
  3. METHOTREXATE [Suspect]
     Dosage: 15 MG
  4. PEG-L ASPARAGINASE (K-H) [Suspect]
     Dosage: 3375 UNIT
  5. PREDNISONE [Suspect]
     Dosage: 30 MG
  6. VINCRISTINE SULFATE [Suspect]
     Dosage: 2 MG
  7. AMOXICILLIN [Concomitant]

REACTIONS (7)
  - ASPERGILLOSIS [None]
  - BRAIN ABSCESS [None]
  - CEREBRAL HAEMORRHAGE [None]
  - COAGULOPATHY [None]
  - CONVULSION [None]
  - HEPATIC FAILURE [None]
  - NERVOUS SYSTEM DISORDER [None]
